FAERS Safety Report 23757230 (Version 1)
Quarter: 2024Q2

REPORT INFORMATION
  Report Type: Spontaneous
  Country: US (occurrence: None)
  Receive Date: 20240418
  Receipt Date: 20240418
  Transmission Date: 20240715
  Serious: Yes (Death)
  Sender: FDA-Public Use
  Company Number: None

PATIENT
  Age: 89 Year
  Sex: Female

DRUGS (20)
  1. PROLIA [Suspect]
     Active Substance: DENOSUMAB
     Indication: Osteoporosis
     Dosage: 1 ML SQ Q 6 MONTHS INTRAMUSCULAR
     Route: 030
     Dates: start: 20191003, end: 20231017
  2. ATORVASTATIN [Concomitant]
     Active Substance: ATORVASTATIN
  3. ENALAPRIL [Concomitant]
     Active Substance: ENALAPRIL
  4. FOLIC ACID [Concomitant]
     Active Substance: FOLIC ACID
  5. FUROSEMIDE [Concomitant]
     Active Substance: FUROSEMIDE
  6. ACETAMINOPHEN\HYDROCODONE [Concomitant]
     Active Substance: ACETAMINOPHEN\HYDROCODONE
  7. ASPIRIN 81MG EC LOW DOSE [Concomitant]
  8. ATENOLOL [Suspect]
     Active Substance: ATENOLOL
  9. CALCIUM CARBONATE\CHOLECALCIFEROL [Concomitant]
     Active Substance: CALCIUM CARBONATE\CHOLECALCIFEROL
  10. CRANBERRY [Concomitant]
     Active Substance: CRANBERRY
  11. EPIPEN [Concomitant]
     Active Substance: EPINEPHRINE
  12. FISH OIL [Concomitant]
     Active Substance: FISH OIL
  13. GABAPENTIN [Concomitant]
     Active Substance: GABAPENTIN
  14. LOVASTATIN [Concomitant]
     Active Substance: LOVASTATIN
  15. METFORMIN [Concomitant]
     Active Substance: METFORMIN HYDROCHLORIDE
  16. OMEPRAZOLE [Concomitant]
     Active Substance: OMEPRAZOLE
  17. ONE A DAY WOMENS 50+ [Concomitant]
  18. QUINAPRIL [Concomitant]
     Active Substance: QUINAPRIL
  19. THIAMINE HYDROCHLORIDE [Concomitant]
     Active Substance: THIAMINE HYDROCHLORIDE
  20. VITAMIN D [Concomitant]
     Active Substance: VITAMIN D NOS

REACTIONS (3)
  - Cardiac disorder [None]
  - Disease complication [None]
  - Cerebrovascular accident [None]

NARRATIVE: CASE EVENT DATE: 20240116
